FAERS Safety Report 8419689-5 (Version None)
Quarter: 2012Q2

REPORT INFORMATION
  Report Type: 
  Country: None (occurrence: None)
  Receive Date: 20120607
  Receipt Date: 20120603
  Transmission Date: 20120825
  Serious: No
  Sender: FDA-Public Use
  Company Number: US-TEVA-341497USA

PATIENT
  Sex: Female
  Weight: 54.48 kg

DRUGS (3)
  1. NORTREL 7/7/7 [Concomitant]
     Indication: CONTRACEPTION
  2. PLAN B ONE-STEP [Suspect]
     Indication: POST COITAL CONTRACEPTION
     Dosage: 1.5 MILLIGRAM;
     Route: 048
     Dates: start: 20120526, end: 20120526
  3. NITROFURANTOIN [Suspect]
     Indication: CYSTITIS
     Dosage: 100 MILLIGRAM;
     Route: 048
     Dates: start: 20120523

REACTIONS (4)
  - PELVIC PAIN [None]
  - FEELING ABNORMAL [None]
  - POLLAKIURIA [None]
  - MENSTRUATION IRREGULAR [None]
